FAERS Safety Report 18078180 (Version 1)
Quarter: 2020Q3

REPORT INFORMATION
  Report Type: Spontaneous
  Country: US (occurrence: US)
  Receive Date: 20200727
  Receipt Date: 20200727
  Transmission Date: 20201103
  Serious: No
  Sender: FDA-Public Use
  Company Number: US-SEATTLE GENETICS-2020SGN02523

PATIENT
  Sex: Female

DRUGS (3)
  1. HERCEPTIN [Suspect]
     Active Substance: TRASTUZUMAB
     Indication: BREAST CANCER FEMALE
  2. TUKYSA [Suspect]
     Active Substance: TUCATINIB
     Indication: BREAST CANCER FEMALE
     Dosage: UNK, BID
  3. TUKYSA [Suspect]
     Active Substance: TUCATINIB
     Dosage: 300MG IN AM, 150MG IN PM

REACTIONS (5)
  - Diarrhoea [Recovered/Resolved]
  - Liver disorder [Unknown]
  - Feeling abnormal [Unknown]
  - Epistaxis [Unknown]
  - Product dose omission issue [Unknown]
